FAERS Safety Report 6311918-7 (Version None)
Quarter: 2009Q3

REPORT INFORMATION
  Report Type: 
  Country: None (occurrence: None)
  Receive Date: 20090817
  Receipt Date: 20090813
  Transmission Date: 20100115
  Serious: Yes (Death, Other)
  Sender: FDA-Public Use
  Company Number: DE-BRISTOL-MYERS SQUIBB COMPANY-14708960

PATIENT
  Age: 31 Year
  Sex: Female

DRUGS (2)
  1. ABILIFY [Suspect]
     Indication: SCHIZOPHRENIA
     Dates: start: 20080901, end: 20090601
  2. MORPHINE [Concomitant]
     Dosage: MORPHINE-PLASTERS

REACTIONS (2)
  - FATIGUE [None]
  - SUDDEN CARDIAC DEATH [None]
